FAERS Safety Report 9011755 (Version 1)
Quarter: 2013Q1

REPORT INFORMATION
  Report Type: Spontaneous
  Country: US (occurrence: US)
  Receive Date: 20130113
  Receipt Date: 20130113
  Transmission Date: 20140127
  Serious: No
  Sender: FDA-Public Use
  Company Number: US-009507513-1210USA008781

PATIENT
  Age: 61 Year
  Sex: Female

DRUGS (3)
  1. AZASITE [Suspect]
     Indication: CONJUNCTIVITIS
     Dosage: 2 GTT, HS
     Route: 047
     Dates: start: 20121012
  2. AZASITE [Suspect]
     Indication: BLEPHARITIS
  3. CYMBALTA [Concomitant]

REACTIONS (5)
  - Eye pain [Not Recovered/Not Resolved]
  - Eye irritation [Not Recovered/Not Resolved]
  - Inappropriate schedule of drug administration [Unknown]
  - Drug dose omission [Unknown]
  - Product packaging quantity issue [Unknown]
